FAERS Safety Report 8225828-1 (Version None)
Quarter: 2012Q1

REPORT INFORMATION
  Report Type: 
  Country: None (occurrence: None)
  Receive Date: 20120321
  Receipt Date: 20120319
  Transmission Date: 20120608
  Serious: Yes (Death)
  Sender: FDA-Public Use
  Company Number: AT-ROCHE-1043052

PATIENT
  Sex: Male
  Weight: 80 kg

DRUGS (2)
  1. AVASTIN [Suspect]
     Indication: METASTATIC RENAL CELL CARCINOMA
     Dosage: 800 (UNIT NOT SPECIFIED)
     Route: 042
     Dates: start: 20100720, end: 20120214
  2. ROFERON-A [Suspect]
     Indication: METASTATIC RENAL CELL CARCINOMA
     Route: 058
     Dates: start: 20100720, end: 20120214

REACTIONS (1)
  - COMPLETED SUICIDE [None]
